FAERS Safety Report 24290986 (Version 1)
Quarter: 2024Q3

REPORT INFORMATION
  Report Type: Spontaneous
  Country: AU (occurrence: AU)
  Receive Date: 20240906
  Receipt Date: 20240906
  Transmission Date: 20241017
  Serious: Yes (Other)
  Sender: BAYER
  Company Number: AU-BAYER-2024A123538

PATIENT

DRUGS (1)
  1. NUBEQA [Suspect]
     Active Substance: DAROLUTAMIDE
     Indication: Hormone-refractory prostate cancer
     Dosage: UNK
     Dates: start: 20240521

REACTIONS (4)
  - Arthralgia [Unknown]
  - Metastases to spine [None]
  - Metastases to pelvis [None]
  - Prostatic specific antigen increased [Not Recovered/Not Resolved]
